FAERS Safety Report 9847027 (Version 1)
Quarter: 2014Q1

REPORT INFORMATION
  Report Type: Spontaneous
  Country: HU (occurrence: HU)
  Receive Date: 20140127
  Receipt Date: 20140127
  Transmission Date: 20141002
  Serious: Yes (Hospitalization)
  Sender: FDA-Public Use
  Company Number: US-ASTRAZENECA-2014SE04881

PATIENT
  Age: 7 Month
  Sex: Female

DRUGS (1)
  1. SYNAGIS [Suspect]
     Indication: PRODUCT USED FOR UNKNOWN INDICATION
     Dosage: SYNAGIS DOSE BASED ON BODY WEIGHT, MONTHLY
     Route: 030
     Dates: start: 20131112

REACTIONS (3)
  - Vomiting [Unknown]
  - Diarrhoea [Unknown]
  - Rotavirus infection [Unknown]
